FAERS Safety Report 4599601-X (Version None)
Quarter: 2005Q1

REPORT INFORMATION
  Report Type: 
  Country: None (occurrence: None)
  Receive Date: 20050303
  Receipt Date: 20050222
  Transmission Date: 20050727
  Serious: Yes (Hospitalization)
  Sender: FDA-Public Use
  Company Number: 20052215

PATIENT
  Sex: Male

DRUGS (1)
  1. LIORESAL [Suspect]
     Indication: MUSCLE SPASTICITY
     Dosage: DAILY, INTRATHECAL
     Route: 039

REACTIONS (4)
  - CATHETER RELATED INFECTION [None]
  - MENINGITIS [None]
  - MUSCLE SPASTICITY [None]
  - STAPHYLOCOCCAL INFECTION [None]
